FAERS Safety Report 16003606 (Version 1)
Quarter: 2019Q1

REPORT INFORMATION
  Report Type: Spontaneous
  Country: US (occurrence: US)
  Receive Date: 20190225
  Receipt Date: 20190225
  Transmission Date: 20190418
  Serious: Yes (Other)
  Sender: FDA-Public Use
  Company Number: US-PRINSTON PHARMACEUTICAL INC.-2018PRN01264

PATIENT
  Age: 60 Year
  Sex: Female
  Weight: 68.93 kg

DRUGS (5)
  1. VALSARTAN. [Suspect]
     Active Substance: VALSARTAN
     Indication: HYPERTENSION
     Dosage: 160 MG, 2X/DAY
     Route: 048
     Dates: start: 201708, end: 201808
  2. UNSPECIFIED BLOOD PRESSURE MEDICATIONS [Concomitant]
     Active Substance: UNSPECIFIED INGREDIENT
  3. NORTRIPTYLINE [Concomitant]
     Active Substance: NORTRIPTYLINE
  4. UNSPECIFIED MEDICATIONS [Concomitant]
     Active Substance: UNSPECIFIED INGREDIENT
  5. UNSPECIFIED DIABETES MEDICATIONS [Concomitant]

REACTIONS (14)
  - Dysphagia [Recovered/Resolved]
  - Dizziness [Recovering/Resolving]
  - Pancreatitis [Recovering/Resolving]
  - Nausea [Not Recovered/Not Resolved]
  - Diverticulitis [Unknown]
  - Abdominal pain upper [Recovering/Resolving]
  - Irritable bowel syndrome [Unknown]
  - Blood pressure increased [Recovered/Resolved]
  - Hepatitis [Unknown]
  - Vomiting [Recovered/Resolved]
  - Vertigo [Recovering/Resolving]
  - Bile duct obstruction [Unknown]
  - Recalled product administered [Unknown]
  - Feeding disorder [Recovered/Resolved]

NARRATIVE: CASE EVENT DATE: 201708
